FAERS Safety Report 4301115-9 (Version None)
Quarter: 2004Q1

REPORT INFORMATION
  Report Type: 
  Country: None (occurrence: None)
  Receive Date: 20040218
  Receipt Date: 20040122
  Transmission Date: 20041129
  Serious: Yes (Hospitalization)
  Sender: FDA-Public Use
  Company Number: A01200400266

PATIENT
  Age: 64 Year
  Sex: Male

DRUGS (6)
  1. ELOXATIN [Suspect]
     Indication: COLON CANCER
     Dosage: 250 MG Q3W INTRAVENOUS NOS
     Route: 042
     Dates: start: 20031201, end: 20031201
  2. ELOXATIN [Suspect]
     Indication: METASTASES TO LIVER
     Dosage: 250 MG Q3W INTRAVENOUS NOS
     Route: 042
     Dates: start: 20031201, end: 20031201
  3. XELODA [Concomitant]
  4. METFORMIN [Concomitant]
  5. LORAZEPAM [Concomitant]
  6. MIXTARD HUMAN 70/30 [Concomitant]

REACTIONS (1)
  - DUODENAL ULCER HAEMORRHAGE [None]
